FAERS Safety Report 11304559 (Version 1)
Quarter: 2015Q3

REPORT INFORMATION
  Report Type: Spontaneous
  Country: US (occurrence: US)
  Receive Date: 20150723
  Receipt Date: 20150723
  Transmission Date: 20151125
  Serious: No
  Sender: FDA-Public Use
  Company Number: US-JNJFOC-20150404812

PATIENT
  Age: 34 Year
  Sex: Female

DRUGS (4)
  1. ADVIL [Concomitant]
     Active Substance: IBUPROFEN
     Indication: OROPHARYNGEAL PAIN
     Dosage: 2 EVERY 7-8 HOURS
     Route: 065
     Dates: start: 20150314
  2. ZYRTEC [Suspect]
     Active Substance: CETIRIZINE HYDROCHLORIDE
     Indication: OROPHARYNGEAL PAIN
     Route: 065
     Dates: start: 20150314
  3. ZYRTEC [Suspect]
     Active Substance: CETIRIZINE HYDROCHLORIDE
     Indication: EAR DISORDER
     Route: 065
     Dates: start: 20150314
  4. ADVIL [Concomitant]
     Active Substance: IBUPROFEN
     Indication: EAR PAIN
     Dosage: 2 EVERY 7-8 HOURS
     Route: 065
     Dates: start: 20150314

REACTIONS (5)
  - Irritability [Recovering/Resolving]
  - Agitation [Recovering/Resolving]
  - Product use issue [Recovering/Resolving]
  - Nervousness [Recovering/Resolving]
  - Unevaluable event [Recovering/Resolving]

NARRATIVE: CASE EVENT DATE: 20150314
